FAERS Safety Report 25784633 (Version 1)
Quarter: 2025Q3

REPORT INFORMATION
  Report Type: Spontaneous
  Country: CA (occurrence: CA)
  Receive Date: 20250910
  Receipt Date: 20250910
  Transmission Date: 20251021
  Serious: Yes (Other)
  Sender: ACCORD
  Company Number: None

PATIENT
  Age: 79 Year
  Sex: Male

DRUGS (1)
  1. METHOTREXATE SODIUM [Suspect]
     Active Substance: METHOTREXATE SODIUM
     Indication: Granulomatosis with polyangiitis

REACTIONS (7)
  - Cardiomyopathy [Not Recovered/Not Resolved]
  - Inflammation [Not Recovered/Not Resolved]
  - Cardiac failure congestive [Not Recovered/Not Resolved]
  - Drug ineffective for unapproved indication [Not Recovered/Not Resolved]
  - Off label use [Not Recovered/Not Resolved]
  - Hypervolaemia [Not Recovered/Not Resolved]
  - Arrhythmia [Not Recovered/Not Resolved]
